FAERS Safety Report 11913512 (Version 1)
Quarter: 2016Q1

REPORT INFORMATION
  Report Type: Spontaneous
  Country: US (occurrence: US)
  Receive Date: 20160113
  Receipt Date: 20160113
  Transmission Date: 20160526
  Serious: Yes (Hospitalization, Other)
  Sender: FDA-Public Use
  Company Number: US-ACTAVIS-2015-28855

PATIENT
  Age: 52 Year
  Sex: Female
  Weight: 72.56 kg

DRUGS (9)
  1. HUMIRA [Suspect]
     Active Substance: ADALIMUMAB
     Indication: RHEUMATOID ARTHRITIS
     Dosage: 40 MG, ONCE EVERY 2 WEEKS
     Route: 065
     Dates: start: 201311, end: 201404
  2. MORPHINE [Concomitant]
     Active Substance: MORPHINE
     Indication: PAIN
     Dosage: UNKNOWN
     Route: 065
  3. NORCO [Suspect]
     Active Substance: ACETAMINOPHEN\HYDROCODONE BITARTRATE
     Indication: PRODUCT USED FOR UNKNOWN INDICATION
     Dosage: UNKNOWN
     Route: 065
     Dates: start: 201407, end: 201407
  4. TYLENOL [Suspect]
     Active Substance: ACETAMINOPHEN
     Indication: PYREXIA
     Dosage: UNKNOWN
     Route: 065
     Dates: start: 201407, end: 201407
  5. ACETYLCYSTEINE. [Suspect]
     Active Substance: ACETYLCYSTEINE
     Indication: DRUG LEVEL INCREASED
     Dosage: UNKNOWN
     Route: 065
     Dates: start: 201407, end: 201407
  6. COUMADIN [Concomitant]
     Active Substance: WARFARIN SODIUM
     Indication: FACTOR V DEFICIENCY
     Dosage: UNKNOWN
     Route: 065
  7. CELEXA [Concomitant]
     Active Substance: CITALOPRAM HYDROBROMIDE
     Indication: DEPRESSION
     Dosage: UNKNOWN
     Route: 065
  8. LOSORTAN POTASSIUM [Suspect]
     Active Substance: LOSARTAN POTASSIUM
     Indication: HYPERTENSION
     Dosage: UNKNOWN
     Route: 065
     Dates: end: 20141216
  9. HUMIRA [Suspect]
     Active Substance: ADALIMUMAB
     Indication: PSORIASIS

REACTIONS (21)
  - Ovarian mass [Recovered/Resolved]
  - Rash erythematous [Recovered/Resolved]
  - Blood pressure decreased [Recovered/Resolved]
  - Urinary incontinence [Unknown]
  - Pelvic prolapse [Recovered/Resolved]
  - Abdominal distension [Recovered/Resolved]
  - Speech disorder [Recovered/Resolved]
  - Communication disorder [Recovered/Resolved]
  - Abdominal adhesions [Recovered/Resolved]
  - Post procedural complication [Recovering/Resolving]
  - Kidney enlargement [Recovering/Resolving]
  - Bladder prolapse [Recovered/Resolved]
  - Anaemia [Recovered/Resolved]
  - Urinary tract obstruction [Recovered/Resolved]
  - Kidney infection [Recovered/Resolved]
  - Hydronephrosis [Recovering/Resolving]
  - Weight decreased [Unknown]
  - Congenital renal disorder [Unknown]
  - Incoherent [Recovered/Resolved]
  - Dyspnoea [Recovered/Resolved]
  - Gastric prolapse [Recovered/Resolved]

NARRATIVE: CASE EVENT DATE: 201404
